FAERS Safety Report 6680649-6 (Version None)
Quarter: 2010Q2

REPORT INFORMATION
  Report Type: 
  Country: None (occurrence: None)
  Receive Date: 20100414
  Receipt Date: 20100406
  Transmission Date: 20101027
  Serious: Yes (Death, Other)
  Sender: FDA-Public Use
  Company Number: CN-PFIZER INC-2010036708

PATIENT
  Age: 42 Year

DRUGS (2)
  1. SOLU-MEDROL [Suspect]
     Indication: ASTHMA
     Dosage: 40 MG, 3X/DAY
     Route: 042
     Dates: start: 20100123, end: 20100227
  2. SOLU-MEDROL [Suspect]
     Dosage: 40 MG, 1X/DAY
     Route: 042
     Dates: start: 20100227, end: 20100310

REACTIONS (4)
  - ASTHMA [None]
  - DISSEMINATED INTRAVASCULAR COAGULATION [None]
  - MOUTH ULCERATION [None]
  - PULMONARY HAEMORRHAGE [None]
